FAERS Safety Report 8119708-X (Version None)
Quarter: 2012Q1

REPORT INFORMATION
  Report Type: 
  Country: None (occurrence: None)
  Receive Date: 20120207
  Receipt Date: 20120203
  Transmission Date: 20120608
  Serious: Yes (Other)
  Sender: FDA-Public Use
  Company Number: PHEH2012US003172

PATIENT
  Sex: Male
  Weight: 58 kg

DRUGS (5)
  1. MEGACE [Concomitant]
  2. EXJADE [Suspect]
     Indication: IRON OVERLOAD
     Dosage: 1000 MG, QD
     Route: 048
  3. VIDAZA [Concomitant]
     Indication: MYELODYSPLASTIC SYNDROME
     Dosage: 75 MG/M2, UNK
     Route: 058
  4. LEVOXYL [Concomitant]
     Dosage: 137 MG, DAILY
     Route: 048
  5. COMPAZINE [Concomitant]
     Dosage: 10 MG, PRN
     Route: 048

REACTIONS (3)
  - RECTAL ABSCESS [None]
  - MALAISE [None]
  - NEUTROPENIA [None]
